FAERS Safety Report 6883186-9 (Version None)
Quarter: 2010Q3

REPORT INFORMATION
  Report Type: 
  Country: None (occurrence: None)
  Receive Date: 20100727
  Receipt Date: 20071024
  Transmission Date: 20110219
  Serious: Yes (Hospitalization, Other)
  Sender: FDA-Public Use
  Company Number: US-PFIZER INC-2006119071

PATIENT
  Sex: Male
  Weight: 90.7 kg

DRUGS (5)
  1. CELEBREX [Suspect]
     Indication: PAIN
     Dates: start: 20000329
  2. CELEBREX [Suspect]
     Indication: OSTEOARTHRITIS
  3. VIOXX [Suspect]
     Indication: OSTEOARTHRITIS
     Dosage: UP TO TWO TIMES PER DAY
     Route: 048
     Dates: start: 20000329
  4. VIOXX [Suspect]
     Indication: PAIN
  5. ZETIA [Concomitant]
     Indication: BLOOD CHOLESTEROL INCREASED
     Dates: start: 20010313

REACTIONS (3)
  - ABDOMINAL PAIN UPPER [None]
  - CEREBROVASCULAR ACCIDENT [None]
  - TRANSIENT ISCHAEMIC ATTACK [None]
